FAERS Safety Report 5873016-6 (Version None)
Quarter: 2008Q3

REPORT INFORMATION
  Report Type: 
  Country: None (occurrence: None)
  Receive Date: 20080905
  Receipt Date: 20080827
  Transmission Date: 20090109
  Serious: Yes (Death, Other)
  Sender: FDA-Public Use
  Company Number: BR-PFIZER INC-2008073006

PATIENT
  Sex: Male

DRUGS (1)
  1. DETRUSITOL LA [Suspect]
     Route: 048

REACTIONS (1)
  - DEATH [None]
